FAERS Safety Report 5847593-5 (Version None)
Quarter: 2008Q3

REPORT INFORMATION
  Report Type: 
  Country: None (occurrence: None)
  Receive Date: 20080818
  Receipt Date: 20080808
  Transmission Date: 20090109
  Serious: Yes (Other)
  Sender: FDA-Public Use
  Company Number: GB-SP-2008-02598

PATIENT
  Age: 66 Year
  Sex: Male

DRUGS (4)
  1. IMMUCYST [Suspect]
     Indication: BLADDER CANCER
     Route: 065
     Dates: start: 20080715
  2. VITAMIN B [Concomitant]
  3. BENDROFLUAZIDE [Concomitant]
  4. PERINDOPRIL ERBUMINE [Concomitant]

REACTIONS (2)
  - DIZZINESS [None]
  - SYNCOPE [None]
